FAERS Safety Report 22279137 (Version 4)
Quarter: 2025Q2

REPORT INFORMATION
  Report Type: Spontaneous
  Country: US (occurrence: US)
  Receive Date: 20230503
  Receipt Date: 20250424
  Transmission Date: 20250717
  Serious: Yes (Other)
  Sender: PFIZER
  Company Number: US-PFIZER INC-PV202300077406

PATIENT
  Age: 70 Year
  Sex: Female

DRUGS (5)
  1. XELJANZ [Suspect]
     Active Substance: TOFACITINIB CITRATE
     Indication: Lichen planus
  2. XELJANZ [Suspect]
     Active Substance: TOFACITINIB CITRATE
     Dosage: 5 MG, 2X/DAY
  3. MAGNESIUM [Concomitant]
     Active Substance: MAGNESIUM
  4. XIIDRA [Concomitant]
     Active Substance: LIFITEGRAST
  5. ALBUTEROL [Concomitant]
     Active Substance: ALBUTEROL

REACTIONS (7)
  - Pneumonia [Unknown]
  - Multiple allergies [Unknown]
  - Eye infection [Unknown]
  - Rhinitis allergic [Not Recovered/Not Resolved]
  - Decreased immune responsiveness [Unknown]
  - Condition aggravated [Unknown]
  - Off label use [Unknown]
